FAERS Safety Report 11768581 (Version 2)
Quarter: 2015Q4

REPORT INFORMATION
  Report Type: Spontaneous
  Country: DE (occurrence: DE)
  Receive Date: 20151123
  Receipt Date: 20151207
  Transmission Date: 20160304
  Serious: Yes (Life-Threatening)
  Sender: FDA-Public Use
  Company Number: DE-OTSUKA-2015_015076

PATIENT
  Sex: Female
  Weight: 64.5 kg

DRUGS (6)
  1. BUSULFAN [Suspect]
     Active Substance: BUSULFAN
     Indication: BONE MARROW CONDITIONING REGIMEN
     Dosage: 49.6 MG, QID (FOUR TIMES A DAY)
     Route: 042
     Dates: start: 20150807, end: 20150808
  2. PHENHYDAN [Suspect]
     Active Substance: PHENYTOIN
     Indication: CONVULSION PROPHYLAXIS
     Dosage: 900 MG, UNK
     Route: 048
     Dates: start: 20150805, end: 20150806
  3. ATG [Suspect]
     Active Substance: LAPINE T-LYMPHOCYTE IMMUNE GLOBULIN
     Indication: BONE MARROW CONDITIONING REGIMEN
     Dosage: 620 MG, QD
     Route: 042
     Dates: start: 20150807, end: 20150809
  4. FLUDARABINE [Suspect]
     Active Substance: FLUDARABINE PHOSPHATE
     Indication: BONE MARROW CONDITIONING REGIMEN
     Dosage: 48 MG, QD
     Route: 042
     Dates: start: 20150805, end: 20150809
  5. PHENHYDAN [Suspect]
     Active Substance: PHENYTOIN
     Dosage: 700 MG, SINGLE
     Route: 048
     Dates: start: 20150807, end: 20150807
  6. PHENHYDAN [Suspect]
     Active Substance: PHENYTOIN
     Dosage: 300 MG, UNK
     Route: 048
     Dates: start: 20150808, end: 20150808

REACTIONS (2)
  - Hypotension [Unknown]
  - Sepsis [Recovered/Resolved]

NARRATIVE: CASE EVENT DATE: 20150808
